FAERS Safety Report 20572651 (Version 1)
Quarter: 2022Q1

REPORT INFORMATION
  Report Type: Spontaneous
  Country: BR (occurrence: BR)
  Receive Date: 20220309
  Receipt Date: 20220309
  Transmission Date: 20220424
  Serious: Yes (Death, Other)
  Sender: FDA-Public Use
  Company Number: BR-SLATE RUN PHARMACEUTICALS-22BR000961

PATIENT

DRUGS (4)
  1. VANCOMYCIN HYDROCHLORIDE [Suspect]
     Active Substance: VANCOMYCIN HYDROCHLORIDE
     Indication: Product used for unknown indication
     Dosage: UNK
  2. VANCOMYCIN HYDROCHLORIDE [Suspect]
     Active Substance: VANCOMYCIN HYDROCHLORIDE
     Dosage: UNK
  3. MEROPENEM [Suspect]
     Active Substance: MEROPENEM
     Indication: Product used for unknown indication
     Dosage: UNK
  4. POLYMYXIN B [Concomitant]
     Active Substance: POLYMYXIN B
     Indication: Product used for unknown indication
     Dosage: UNK

REACTIONS (4)
  - Cardio-respiratory arrest [Fatal]
  - Respiratory tract infection [Unknown]
  - Respiratory failure [Unknown]
  - Symmetrical drug-related intertriginous and flexural exanthema [Recovering/Resolving]
